FAERS Safety Report 7449556-5 (Version None)
Quarter: 2011Q2

REPORT INFORMATION
  Report Type: 
  Country: None (occurrence: None)
  Receive Date: 20110502
  Receipt Date: 20110411
  Transmission Date: 20111010
  Serious: Yes (Hospitalization, Other)
  Sender: FDA-Public Use
  Company Number: US-BAYER-2011-035336

PATIENT
  Age: 40 Year
  Sex: Female
  Weight: 98.866 kg

DRUGS (4)
  1. GLUCOPHAGE [Concomitant]
  2. NAPROXEN [Concomitant]
  3. IBUPROFEN [Concomitant]
  4. YAZ [Suspect]
     Dosage: UNK

REACTIONS (2)
  - THROMBOSIS [None]
  - PULMONARY EMBOLISM [None]
